FAERS Safety Report 17642394 (Version 1)
Quarter: 2020Q2

REPORT INFORMATION
  Report Type: Spontaneous
  Country: US (occurrence: US)
  Receive Date: 20200408
  Receipt Date: 20200408
  Transmission Date: 20200713
  Serious: No
  Sender: FDA-Public Use
  Company Number: US-ALLERGAN-1923104US

PATIENT
  Age: 45 Year
  Sex: Female
  Weight: 70.75 kg

DRUGS (1)
  1. LILETTA [Suspect]
     Active Substance: LEVONORGESTREL
     Indication: MENORRHAGIA
     Dosage: 52 MG, SINGLE
     Route: 015
     Dates: start: 20180329

REACTIONS (3)
  - Drug ineffective [Unknown]
  - Medical device discomfort [Unknown]
  - Off label use [Unknown]

NARRATIVE: CASE EVENT DATE: 20180329
